FAERS Safety Report 6411994-7 (Version None)
Quarter: 2009Q4

REPORT INFORMATION
  Report Type: 
  Country: None (occurrence: None)
  Receive Date: 20091023
  Receipt Date: 20091014
  Transmission Date: 20100525
  Serious: Yes (Other)
  Sender: FDA-Public Use
  Company Number: GB-JNJFOC-20091005545

PATIENT
  Sex: Female

DRUGS (3)
  1. REMICADE [Suspect]
     Indication: COLITIS ULCERATIVE
     Route: 042
     Dates: start: 20080401
  2. AMITRIPTYLINE HCL [Concomitant]
  3. OTHER DRUGS (UNSPECIFIED) [Concomitant]
     Indication: COLITIS ULCERATIVE

REACTIONS (1)
  - MELANOCYTIC NAEVUS [None]
